FAERS Safety Report 7153602-6 (Version None)
Quarter: 2010Q4

REPORT INFORMATION
  Report Type: 
  Country: None (occurrence: None)
  Receive Date: 20101213
  Receipt Date: 20101209
  Transmission Date: 20110411
  Serious: Yes (Hospitalization)
  Sender: FDA-Public Use
  Company Number: KR-BRISTOL-MYERS SQUIBB COMPANY-15432735

PATIENT
  Age: 66 Year
  Sex: Female

DRUGS (8)
  1. CETUXIMAB [Suspect]
     Indication: COLORECTAL CANCER
     Dosage: RECENT DOSE:20NOV10
     Route: 042
     Dates: start: 20100809, end: 20101120
  2. FLUOROURACIL [Suspect]
     Indication: COLORECTAL CANCER
     Dosage: BOLUS 509MG AND CONTINUOUS 3053MG ON DAY 1 AND 2,RECENT DOSE:21NOV10
     Route: 042
     Dates: start: 20100809, end: 20101121
  3. LEUCOVORIN [Suspect]
     Indication: COLORECTAL CANCER
     Dosage: RECENT DOSE:20NOV10
     Route: 042
     Dates: start: 20100809, end: 20101120
  4. OXALIPLATIN [Suspect]
     Indication: COLORECTAL CANCER
     Dosage: RECENT DOSE:20NOV10
     Route: 042
     Dates: start: 20100809, end: 20101120
  5. VOGLIBOSE [Concomitant]
     Indication: DIABETES MELLITUS
     Route: 048
  6. AMARYL [Concomitant]
     Indication: DIABETES MELLITUS
     Dosage: ALSO 4MG/D
     Route: 048
  7. BUP-4 [Concomitant]
     Indication: URINARY INCONTINENCE
     Route: 048
     Dates: start: 20101130
  8. CRAVIT [Concomitant]
     Indication: URINARY INCONTINENCE
     Route: 048
     Dates: start: 20101130

REACTIONS (1)
  - THROMBOSIS [None]
